FAERS Safety Report 24201345 (Version 1)
Quarter: 2024Q3

REPORT INFORMATION
  Report Type: Spontaneous
  Country: JP (occurrence: JP)
  Receive Date: 20240812
  Receipt Date: 20240812
  Transmission Date: 20241017
  Serious: Yes (Hospitalization, Other)
  Sender: WOCKHARDT BIO AG
  Company Number: JP-WOCKHARDT BIO AG-2024WBA000016

PATIENT
  Age: 19 Year
  Sex: Female

DRUGS (3)
  1. ACETAMINOPHEN [Suspect]
     Active Substance: ACETAMINOPHEN
     Indication: Product used for unknown indication
     Dosage: 25000 MG
     Route: 065
  2. TRIAZOLAM [Concomitant]
     Active Substance: TRIAZOLAM
     Indication: Product used for unknown indication
     Dosage: UNK
     Route: 065
  3. BROTIZOLAM [Concomitant]
     Active Substance: BROTIZOLAM
     Indication: Product used for unknown indication
     Dosage: UNK
     Route: 065

REACTIONS (7)
  - Hepatic encephalopathy [Recovering/Resolving]
  - Electrocardiogram QT prolonged [Recovering/Resolving]
  - Metabolic acidosis [Recovering/Resolving]
  - Torsade de pointes [Recovering/Resolving]
  - Ventricular fibrillation [Recovering/Resolving]
  - Overdose [Unknown]
  - Acute hepatic failure [Not Recovered/Not Resolved]
